FAERS Safety Report 22017231 (Version 4)
Quarter: 2023Q2

REPORT INFORMATION
  Report Type: Report from Study
  Country: US (occurrence: US)
  Receive Date: 20230221
  Receipt Date: 20230606
  Transmission Date: 20230722
  Serious: Yes (Other)
  Sender: FDA-Public Use
  Company Number: US-002147023-NVSC2023US035099

PATIENT
  Sex: Female

DRUGS (1)
  1. ENTRESTO [Suspect]
     Active Substance: SACUBITRIL\VALSARTAN
     Indication: Ejection fraction decreased
     Dosage: UNK, BID
     Route: 048
     Dates: start: 202212

REACTIONS (11)
  - Coronary artery occlusion [Unknown]
  - Atrial fibrillation [Unknown]
  - Memory impairment [Recovering/Resolving]
  - COVID-19 [Unknown]
  - Rhinorrhoea [Unknown]
  - Throat clearing [Unknown]
  - Glycosylated haemoglobin increased [Not Recovered/Not Resolved]
  - Weight decreased [Unknown]
  - Nervousness [Unknown]
  - Hypotension [Unknown]
  - Product use in unapproved indication [Unknown]
